FAERS Safety Report 23297392 (Version 2)
Quarter: 2023Q4

REPORT INFORMATION
  Report Type: Spontaneous
  Country: US (occurrence: US)
  Receive Date: 20231214
  Receipt Date: 20231228
  Transmission Date: 20240109
  Serious: No
  Sender: FDA-Public Use
  Company Number: US-TRIS PHARMA, INC.-23US011214

PATIENT

DRUGS (3)
  1. DYANAVEL XR [Suspect]
     Active Substance: AMPHETAMINE
     Indication: Attention deficit hyperactivity disorder
     Dosage: 15 MILLIGRAM, QD
     Route: 048
  2. DYANAVEL XR [Suspect]
     Active Substance: AMPHETAMINE
     Dosage: 20 MILLIGRAM, QD
     Route: 048
     Dates: start: 20231026
  3. DYANAVEL XR [Suspect]
     Active Substance: AMPHETAMINE
     Dosage: 15 MILLIGRAM, QD
     Route: 048
     Dates: start: 20230926, end: 20231025

REACTIONS (2)
  - Trichotillomania [Recovered/Resolved]
  - Off label use [Unknown]

NARRATIVE: CASE EVENT DATE: 20230926
